FAERS Safety Report 21641446 (Version 2)
Quarter: 2022Q4

REPORT INFORMATION
  Report Type: Report from Study
  Country: CA (occurrence: CA)
  Receive Date: 20221125
  Receipt Date: 20221130
  Transmission Date: 20230112
  Serious: Yes (Other)
  Sender: FDA-Public Use
  Company Number: CA-JNJFOC-20221154337

PATIENT
  Age: 6 Decade
  Sex: Female

DRUGS (3)
  1. STELARA [Suspect]
     Active Substance: USTEKINUMAB
     Indication: Crohn^s disease
     Route: 058
     Dates: start: 20170626
  2. STELARA [Suspect]
     Active Substance: USTEKINUMAB
  3. CEFTRIAXONE [Suspect]
     Active Substance: CEFTRIAXONE
     Indication: Ear infection
     Dosage: 7 DAYS
     Route: 042
     Dates: start: 20221118, end: 20221125

REACTIONS (3)
  - Ear infection [Recovering/Resolving]
  - Malaise [Unknown]
  - Diarrhoea [Not Recovered/Not Resolved]
